FAERS Safety Report 17648048 (Version 6)
Quarter: 2021Q1

REPORT INFORMATION
  Report Type: Report from Study
  Country: US (occurrence: US)
  Receive Date: 20200408
  Receipt Date: 20210215
  Transmission Date: 20210419
  Serious: Yes (Other)
  Sender: FDA-Public Use
  Company Number: US-B.I. PHARMACEUTICALS,INC./RIDGEFIELD-2019-BI-116345

PATIENT
  Age: 77 Year
  Sex: Male

DRUGS (1)
  1. OFEV [Suspect]
     Active Substance: NINTEDANIB
     Indication: IDIOPATHIC PULMONARY FIBROSIS
     Dosage: TAKEN WITH FOOD
     Route: 048
     Dates: start: 20191105

REACTIONS (13)
  - Cough [Unknown]
  - Hepatic enzyme increased [Not Recovered/Not Resolved]
  - Blood glucose increased [Not Recovered/Not Resolved]
  - Rhinorrhoea [Not Recovered/Not Resolved]
  - Productive cough [Not Recovered/Not Resolved]
  - Diarrhoea [Unknown]
  - Glycosylated haemoglobin increased [Not Recovered/Not Resolved]
  - Frequent bowel movements [Unknown]
  - Blood potassium decreased [Unknown]
  - Abdominal discomfort [Not Recovered/Not Resolved]
  - Diarrhoea [Recovered/Resolved]
  - Feeding disorder [Unknown]
  - Dyspnoea exertional [Not Recovered/Not Resolved]
